FAERS Safety Report 21569938 (Version 1)
Quarter: 2022Q4

REPORT INFORMATION
  Report Type: Spontaneous
  Country: US (occurrence: US)
  Receive Date: 20221109
  Receipt Date: 20221109
  Transmission Date: 20230113
  Serious: Yes (Congenital Anomaly, Other)
  Sender: FDA-Public Use
  Company Number: US-SPECGX-T202202269

PATIENT

DRUGS (3)
  1. METHADONE [Suspect]
     Active Substance: METHADONE HYDROCHLORIDE
     Indication: Product used for unknown indication
     Dosage: UNK
     Route: 064
  2. GABAPENTIN [Suspect]
     Active Substance: GABAPENTIN
     Indication: Product used for unknown indication
     Dosage: UNK
     Route: 064
  3. ALCOHOL [Suspect]
     Active Substance: ALCOHOL
     Indication: Product used for unknown indication
     Dosage: UNK
     Route: 064

REACTIONS (10)
  - Cleft palate [Unknown]
  - Otospondylomegaepiphyseal dysplasia [Unknown]
  - Congenital musculoskeletal disorder of spine [Unknown]
  - Mitral valve disease [Unknown]
  - Congenital inguinal hernia [Unknown]
  - Eyelid ptosis congenital [Unknown]
  - Gastrooesophageal reflux disease [Unknown]
  - Cognitive disorder [Unknown]
  - Failure to thrive [Unknown]
  - Foetal exposure during pregnancy [Unknown]
